FAERS Safety Report 18961571 (Version 1)
Quarter: 2021Q1

REPORT INFORMATION
  Report Type: Spontaneous
  Country: CA (occurrence: CA)
  Receive Date: 20210303
  Receipt Date: 20210303
  Transmission Date: 20210420
  Serious: Yes (Other)
  Sender: FDA-Public Use
  Company Number: CA-PFIZER INC-06H-028-0310550-00

PATIENT
  Age: 8 Year
  Sex: Male

DRUGS (6)
  1. VANCOMYCIN HCL [Suspect]
     Active Substance: VANCOMYCIN HYDROCHLORIDE
     Dosage: UNK
  2. FENTANYL. [Concomitant]
     Active Substance: FENTANYL
     Indication: GENERAL ANAESTHESIA
     Dosage: FREQ: NOT REPORTED, NOT REPORTED
  3. PROPOFOL. [Concomitant]
     Active Substance: PROPOFOL
     Indication: GENERAL ANAESTHESIA
     Dosage: FREQ: NOT REPORTED, NOT REPORTED
  4. CLOXACILLIN [Concomitant]
     Active Substance: CLOXACILLIN
     Indication: SHUNT INFECTION
     Dosage: FREQ: NOT REPORTED, NOT REPORTED
  5. ISOFLURANE. [Concomitant]
     Active Substance: ISOFLURANE
     Indication: GENERAL ANAESTHESIA
     Dosage: FREQ: NOT REPORTED, NOT REPORTED
     Route: 055
  6. ROCURONIUM [Concomitant]
     Active Substance: ROCURONIUM BROMIDE
     Indication: GENERAL ANAESTHESIA
     Dosage: FREQ: 20 ML/KG, NOT REPORTED

REACTIONS (3)
  - Toxicity to various agents [Recovered/Resolved]
  - Acute kidney injury [Recovered/Resolved]
  - Renal tubular necrosis [Recovered/Resolved]
